FAERS Safety Report 11967264 (Version 1)
Quarter: 2016Q1

REPORT INFORMATION
  Report Type: Spontaneous
  Country: US (occurrence: US)
  Receive Date: 20160127
  Receipt Date: 20160127
  Transmission Date: 20160526
  Serious: Yes (Other)
  Sender: FDA-Public Use
  Company Number: US-BAYER-2016-015453

PATIENT
  Sex: Female

DRUGS (1)
  1. MIRENA [Suspect]
     Active Substance: LEVONORGESTREL
     Dosage: 20 MCG/24HR, CONT
     Route: 015
     Dates: start: 20080921, end: 20121012

REACTIONS (4)
  - Uterine perforation [None]
  - Device difficult to use [None]
  - Pelvic pain [None]
  - Device issue [None]

NARRATIVE: CASE EVENT DATE: 20121004
